FAERS Safety Report 7892687-6 (Version None)
Quarter: 2011Q4

REPORT INFORMATION
  Report Type: 
  Country: None (occurrence: None)
  Receive Date: 20111102
  Receipt Date: 20111021
  Transmission Date: 20120403
  Serious: Yes (Disabling)
  Sender: FDA-Public Use
  Company Number: MIN-00769

PATIENT
  Age: 18 Year

DRUGS (2)
  1. STABLE ANTIRETROVIRAL REGIMEN [Concomitant]
  2. MINOCYCLINE HCL [Suspect]
     Indication: COGNITIVE DISORDER
     Dosage: 100MG EVERY 12 HOURS

REACTIONS (1)
  - ASTHENIA [None]
